FAERS Safety Report 7389032-1 (Version None)
Quarter: 2011Q2

REPORT INFORMATION
  Report Type: 
  Country: None (occurrence: None)
  Receive Date: 20110401
  Receipt Date: 20110325
  Transmission Date: 20111010
  Serious: Yes (Hospitalization, Other)
  Sender: FDA-Public Use
  Company Number: US-ABBOTT-11P-163-0714650-00

PATIENT
  Age: 64 Year
  Sex: Female

DRUGS (16)
  1. HUMIRA [Suspect]
     Indication: RHEUMATOID ARTHRITIS
  2. LYRICA [Concomitant]
     Indication: PRODUCT USED FOR UNKNOWN INDICATION
  3. KLOR-CON [Concomitant]
     Indication: MINERAL SUPPLEMENTATION
  4. MULTI-VITAMIN [Concomitant]
     Indication: VITAMIN SUPPLEMENTATION
  5. CALCIUM W/VITAMIN D [Concomitant]
     Indication: MINERAL SUPPLEMENTATION
  6. CELEBREX [Concomitant]
     Indication: RHEUMATOID ARTHRITIS
  7. PEPCID [Concomitant]
     Indication: GASTRITIS
  8. PREDNISONE [Concomitant]
     Indication: RHEUMATOID ARTHRITIS
  9. CRESTOR [Concomitant]
     Indication: BLOOD CHOLESTEROL INCREASED
  10. AMBIEN [Concomitant]
     Indication: INSOMNIA
  11. LEVOTHYROXINE SODIUM [Concomitant]
     Indication: HYPOTHYROIDISM
  12. ARAVA [Concomitant]
     Indication: RHEUMATOID ARTHRITIS
  13. XANAX [Concomitant]
     Indication: ANXIETY
  14. LASIX [Concomitant]
     Indication: HYPERTENSION
  15. DOXYCYCLINE [Concomitant]
     Indication: PRODUCT USED FOR UNKNOWN INDICATION
  16. ACTONEL [Concomitant]
     Indication: OSTEOARTHRITIS

REACTIONS (4)
  - POSTERIOR REVERSIBLE ENCEPHALOPATHY SYNDROME [None]
  - DEAFNESS [None]
  - BLINDNESS [None]
  - GRAND MAL CONVULSION [None]
